FAERS Safety Report 12633297 (Version 2)
Quarter: 2016Q3

REPORT INFORMATION
  Report Type: Spontaneous
  Country: US (occurrence: US)
  Receive Date: 20160808
  Receipt Date: 20160808
  Transmission Date: 20161109
  Serious: No
  Sender: FDA-Public Use
  Company Number: US-BEH-2016060422

PATIENT
  Sex: Male
  Weight: 72 kg

DRUGS (9)
  1. DIPHENHYDRAMINE. [Concomitant]
     Active Substance: DIPHENHYDRAMINE
  2. AZITHROMYCIN ANHYDROUS. [Concomitant]
     Active Substance: AZITHROMYCIN ANHYDROUS
  3. XYLITOL [Concomitant]
     Active Substance: XYLITOL
     Dosage: POWDER
  4. FLONASE [Concomitant]
     Active Substance: FLUTICASONE PROPIONATE
  5. HIZENTRA [Suspect]
     Active Substance: HUMAN IMMUNOGLOBULIN G
     Indication: HYPOGAMMAGLOBULINAEMIA
     Route: 058
     Dates: start: 20140916
  6. IBUPROFEN. [Concomitant]
     Active Substance: IBUPROFEN
  7. ALBUTEROL. [Concomitant]
     Active Substance: ALBUTEROL
  8. EPIPEN [Concomitant]
     Active Substance: EPINEPHRINE
  9. PROBIOTICS [Concomitant]
     Active Substance: PROBIOTICS NOS

REACTIONS (1)
  - Sinusitis [Unknown]
